FAERS Safety Report 21405362 (Version 1)
Quarter: 2022Q4

REPORT INFORMATION
  Report Type: Report from Study
  Country: AU (occurrence: AU)
  Receive Date: 20221004
  Receipt Date: 20221004
  Transmission Date: 20230112
  Serious: Yes (Hospitalization, Disabling, Other)
  Sender: FDA-Public Use
  Company Number: AU-NOVARTISPH-PHHO2017AU007700

PATIENT
  Age: 61 Year
  Sex: Male
  Weight: 87 kg

DRUGS (5)
  1. ASCIMINIB [Suspect]
     Active Substance: ASCIMINIB
     Indication: Chronic myeloid leukaemia
     Dosage: 120 MG, QD
     Route: 048
     Dates: start: 20150407
  2. ASCIMINIB [Suspect]
     Active Substance: ASCIMINIB
     Dosage: 80 MG, QD
     Route: 048
     Dates: start: 20170726
  3. ASPIRIN [Concomitant]
     Active Substance: ASPIRIN
     Indication: Prophylaxis
     Dosage: 100 MG, QD
     Route: 065
     Dates: start: 20150728
  4. PERINDOPRIL [Concomitant]
     Active Substance: PERINDOPRIL
     Indication: Hypertension
     Dosage: 10 MG, QD
     Route: 065
     Dates: start: 20170407
  5. AMLODIPINE [Concomitant]
     Active Substance: AMLODIPINE BESYLATE
     Indication: Hypertension
     Dosage: 5 MG, QD
     Route: 065
     Dates: start: 20170407

REACTIONS (1)
  - Cerebrovascular accident [Recovering/Resolving]

NARRATIVE: CASE EVENT DATE: 20170413
